FAERS Safety Report 8898977 (Version 1)
Quarter: 2012Q4

REPORT INFORMATION
  Report Type: 
  Country: DE (occurrence: DE)
  Receive Date: 20121109
  Receipt Date: 20121109
  Transmission Date: 20130627
  Serious: Yes (Life-Threatening, Hospitalization, Other)
  Sender: FDA-Public Use
  Company Number: DE-ELI_LILLY_AND_COMPANY-DE201210001695

PATIENT
  Sex: Male

DRUGS (7)
  1. EFIENT [Suspect]
     Indication: ACUTE MYOCARDIAL INFARCTION
     Dosage: 60 mg, single
     Dates: start: 20120803, end: 20120803
  2. EFIENT [Suspect]
     Dosage: 10 mg, qd
     Dates: start: 20120804, end: 20120807
  3. ASS [Concomitant]
     Dosage: UNK, unknown
  4. STARLIX [Concomitant]
     Dosage: UNK, unknown
  5. BETA BLOCKING AGENTS [Concomitant]
     Dosage: UNK, unknown
  6. ACE INHIBITORS [Concomitant]
     Dosage: UNK, unknown
  7. UNFRACTIONATED HEPARIN [Concomitant]
     Dosage: 7500 u, UNK
     Dates: start: 20120807

REACTIONS (2)
  - Cerebral haemorrhage [Not Recovered/Not Resolved]
  - Percutaneous coronary intervention [Unknown]
